FAERS Safety Report 9838740 (Version 1)
Quarter: 2014Q1

REPORT INFORMATION
  Report Type: Spontaneous
  Country: US (occurrence: None)
  Receive Date: 20140117
  Receipt Date: 20140117
  Transmission Date: 20141002
  Serious: Yes (Disabling, Other)
  Sender: FDA-Public Use
  Company Number: None

PATIENT
  Age: 71 Year
  Sex: Male
  Weight: 108.86 kg

DRUGS (1)
  1. TYLENOL [Suspect]
     Indication: RIB FRACTURE
     Dosage: PRN TO 3000MG/DAY, PRN/AS NEEDED, ORAL
     Route: 048

REACTIONS (2)
  - Pain [None]
  - Pain [None]
